FAERS Safety Report 4648355-7 (Version None)
Quarter: 2005Q2

REPORT INFORMATION
  Report Type: 
  Country: None (occurrence: None)
  Receive Date: 20050429
  Receipt Date: 20050418
  Transmission Date: 20051028
  Serious: Yes (Hospitalization, Other)
  Sender: FDA-Public Use
  Company Number: CA-JNJFOC-20050301551

PATIENT
  Sex: Female

DRUGS (5)
  1. REMICADE [Suspect]
     Route: 042
  2. REMICADE [Suspect]
     Indication: CROHN'S DISEASE
     Route: 042
  3. HUMIRA [Suspect]
     Indication: CROHN'S DISEASE
  4. IMURAN [Concomitant]
  5. PREDNISONE [Concomitant]

REACTIONS (2)
  - DIARRHOEA [None]
  - PULMONARY TUBERCULOSIS [None]
